FAERS Safety Report 6127208-1 (Version None)
Quarter: 2009Q1

REPORT INFORMATION
  Report Type: 
  Country: None (occurrence: None)
  Receive Date: 20090320
  Receipt Date: 20090311
  Transmission Date: 20090719
  Serious: Yes (Hospitalization)
  Sender: FDA-Public Use
  Company Number: GR-ABBOTT-09P-066-0498115-00

PATIENT
  Age: 80 Year
  Sex: Male
  Weight: 68 kg

DRUGS (11)
  1. ZEMPLAR [Suspect]
     Indication: HYPERPARATHYROIDISM SECONDARY
     Dosage: HEMODIALYSIS
     Route: 042
     Dates: start: 20080624
  2. ARANESP [Concomitant]
     Indication: ANAEMIA
     Route: 042
  3. NEUROBION [Concomitant]
     Indication: VITAMIN SUPPLEMENTATION
     Dosage: HEMODIALYSIS
     Route: 042
  4. SUPERAMINE AMP [Concomitant]
     Indication: VITAMIN SUPPLEMENTATION
     Dosage: HEMODIALYSIS
     Route: 042
  5. LASIX [Concomitant]
     Indication: DIURETIC THERAPY
     Dosage: 1/4 PER DAY
     Route: 048
  6. FILICINE [Concomitant]
     Indication: VITAMIN SUPPLEMENTATION
     Route: 048
  7. PLAVIX [Concomitant]
     Indication: DRUG USE FOR UNKNOWN INDICATION
     Route: 048
  8. ZYLORIC [Concomitant]
     Indication: HYPERURICAEMIA
     Route: 048
  9. RENAGEL [Concomitant]
     Indication: HYPERPHOSPHATAEMIA
     Dosage: 2 AM, 3 LUNCH, 2HS
     Route: 048
  10. NORVASC [Concomitant]
     Indication: HYPERTENSION
     Route: 048
  11. ZANTAC [Concomitant]
     Indication: PROPHYLAXIS AGAINST GASTROINTESTINAL ULCER
     Route: 048

REACTIONS (1)
  - CHOLECYSTITIS [None]
